FAERS Safety Report 6640067-3 (Version None)
Quarter: 2010Q1

REPORT INFORMATION
  Report Type: 
  Country: None (occurrence: None)
  Receive Date: 20100315
  Receipt Date: 20100301
  Transmission Date: 20100710
  Serious: No
  Sender: FDA-Public Use
  Company Number: 009026

PATIENT
  Age: 70 Year
  Sex: Male

DRUGS (2)
  1. PLETAL [Suspect]
     Indication: ARTERIOSCLEROSIS OBLITERANS
     Dosage: BID ORAL
     Route: 048
     Dates: end: 20100225
  2. X-RAY CONTRAST AGENTS [Concomitant]

REACTIONS (6)
  - ANAEMIA [None]
  - CARDIAC FAILURE [None]
  - CONDITION AGGRAVATED [None]
  - HEART RATE INCREASED [None]
  - INFECTION [None]
  - RENAL IMPAIRMENT [None]
